FAERS Safety Report 12824006 (Version 1)
Quarter: 2016Q4

REPORT INFORMATION
  Report Type: Spontaneous
  Country: US (occurrence: US)
  Receive Date: 20161006
  Receipt Date: 20161006
  Transmission Date: 20170207
  Serious: Yes (Other)
  Sender: FDA-Public Use
  Company Number: None

PATIENT
  Age: 28 Year
  Sex: Female
  Weight: 99 kg

DRUGS (5)
  1. CITALOPRAM [Suspect]
     Active Substance: CITALOPRAM HYDROBROMIDE
     Indication: MENTAL DISORDER
     Dosage: ?          QUANTITY:1 TABLET(S);?
     Route: 048
     Dates: start: 20160628, end: 20160725
  2. CALCIUM/MAGNESIUM [Concomitant]
  3. MULTIVITAMIN WITH DHA [Concomitant]
  4. RABEPRAZOLE [Concomitant]
     Active Substance: RABEPRAZOLE
  5. IRON [Concomitant]
     Active Substance: IRON

REACTIONS (6)
  - Impaired driving ability [None]
  - Nystagmus [None]
  - Vomiting [None]
  - Discomfort [None]
  - Activities of daily living impaired [None]
  - Vertigo [None]

NARRATIVE: CASE EVENT DATE: 20160725
